FAERS Safety Report 14586190 (Version 1)
Quarter: 2018Q1

REPORT INFORMATION
  Report Type: Spontaneous
  Country: US (occurrence: US)
  Receive Date: 20180301
  Receipt Date: 20180301
  Transmission Date: 20180509
  Serious: Yes (Hospitalization, Other)
  Sender: FDA-Public Use
  Company Number: US-MALLINCKRODT-T201800818

PATIENT
  Sex: Female

DRUGS (1)
  1. FENTANYL TRANSDERMAL SYSTEM [Suspect]
     Active Substance: FENTANYL
     Indication: PAIN
     Dosage: 12MCG/HR, 1 PATCH EVERY 72 HOURS
     Route: 062
     Dates: start: 2017, end: 201802

REACTIONS (4)
  - Feeling abnormal [Unknown]
  - Seizure [Unknown]
  - Dermatitis contact [Unknown]
  - Urticaria [Recovering/Resolving]
